FAERS Safety Report 16441355 (Version 1)
Quarter: 2019Q2

REPORT INFORMATION
  Report Type: Spontaneous
  Country: CA (occurrence: CA)
  Receive Date: 20190617
  Receipt Date: 20190617
  Transmission Date: 20190711
  Serious: Yes (Other)
  Sender: FDA-Public Use
  Company Number: CA-PFIZER INC-2017181081

PATIENT
  Age: 53 Year
  Sex: Female
  Weight: 84 kg

DRUGS (29)
  1. INFLECTRA [Suspect]
     Active Substance: INFLIXIMAB-DYYB
     Dosage: 500 MG, EVERY 4 WEEKS
     Route: 042
  2. INFLECTRA [Suspect]
     Active Substance: INFLIXIMAB-DYYB
     Dosage: 420 MG, (5MG/KG) EVERY 4 WEEKS
     Route: 042
     Dates: start: 20190514
  3. ACETAMINOPHEN. [Concomitant]
     Active Substance: ACETAMINOPHEN
     Indication: PREMEDICATION
     Dosage: 650 MG, UNK
     Route: 048
     Dates: start: 20190611, end: 20190611
  4. GABAPENTIN. [Suspect]
     Active Substance: GABAPENTIN
     Dosage: 1.8 G, DAILY (6 TABLETS DAILY - 2 TABLETS AM, 1 TABLET PM AND 3 TABLETS AT NIGHT)
     Route: 048
  5. CORTIFOAM [Concomitant]
     Active Substance: HYDROCORTISONE ACETATE
     Indication: MUSCLE SPASMS
     Dosage: UNK, TWICE A DAY
     Route: 054
  6. MODULON [Concomitant]
     Active Substance: TRIMEBUTINE MALEATE
     Dosage: 1 DF, 2X/DAY
     Route: 048
  7. HYDROMORPHONE [Concomitant]
     Active Substance: HYDROMORPHONE
     Indication: MUSCLE SPASMS
     Dosage: 0.5 MG, 3-4 TIMES A WEEK
  8. INFLECTRA [Suspect]
     Active Substance: INFLIXIMAB-DYYB
     Dosage: 420 MG, (5MG/KG) EVERY 4 WEEKS
     Route: 042
     Dates: start: 20180808
  9. MIDAZOLAM [Suspect]
     Active Substance: MIDAZOLAM HYDROCHLORIDE
     Indication: SEDATION
     Dosage: 2.5 MG, UNK
     Route: 042
     Dates: start: 20170116
  10. MODULON [Concomitant]
     Active Substance: TRIMEBUTINE MALEATE
     Dosage: UNK
     Route: 048
  11. RANITIDINE. [Concomitant]
     Active Substance: RANITIDINE
     Dosage: 150 MG, ONCE DAILY
     Route: 048
  12. LAX-A-DAY [Concomitant]
     Dosage: ONCE A DAY (HALF PACK)
  13. INFLECTRA [Suspect]
     Active Substance: INFLIXIMAB-DYYB
     Dosage: 420 MG, (5MG/KG) EVERY 4 WEEKS
     Route: 042
     Dates: start: 20181224
  14. HYDROCHOROTHIAZIDE [Suspect]
     Active Substance: HYDROCHLOROTHIAZIDE
     Dosage: 2.5 MG, ONCE A DAY
     Route: 048
  15. THYROXINE [Concomitant]
     Active Substance: LEVOTHYROXINE
     Dosage: UNK
  16. PEG /01614101/ [Concomitant]
     Dosage: UNK
  17. HYDROCORTISONE. [Concomitant]
     Active Substance: HYDROCORTISONE
     Indication: PREMEDICATION
     Dosage: 100 MG, UNK
     Route: 042
     Dates: start: 20190611, end: 20190611
  18. INFLECTRA [Suspect]
     Active Substance: INFLIXIMAB-DYYB
     Indication: CROHN^S DISEASE
     Dosage: 500 MG, INDUCTION 0, 2 WEEKS AND THEN MAINTENANCE EVERY 8 WEEKS
     Route: 042
     Dates: start: 20170206
  19. PREDNISONE. [Concomitant]
     Active Substance: PREDNISONE
     Dosage: 20 MG, ONCE A DAY (TAPER)
     Route: 048
  20. MODULON [Concomitant]
     Active Substance: TRIMEBUTINE MALEATE
     Dosage: UNK, TWICE A DAY
     Route: 048
  21. ZOPICLONE [Concomitant]
     Active Substance: ZOPICLONE
     Dosage: 7.5 MG, ONCE A DAY, AT BEDTIME
     Route: 048
  22. INFLECTRA [Suspect]
     Active Substance: INFLIXIMAB-DYYB
     Dosage: 420 MG, (5MG/KG) EVERY 4 WEEKS
     Route: 042
     Dates: start: 20190611
  23. VENLAFAXINE HCL [Suspect]
     Active Substance: VENLAFAXINE HYDROCHLORIDE
     Dosage: 100 MG, DAILY
     Route: 048
  24. INFLECTRA [Suspect]
     Active Substance: INFLIXIMAB-DYYB
     Dosage: 600 MG, EVERY 4 WEEKS
     Route: 042
     Dates: start: 20170206, end: 20180711
  25. INFLECTRA [Suspect]
     Active Substance: INFLIXIMAB-DYYB
     Dosage: 420 MG, (5MG/KG) EVERY 4 WEEKS
     Route: 042
     Dates: start: 20181128
  26. CEFTRIAXONE SODIUM. [Suspect]
     Active Substance: CEFTRIAXONE SODIUM
     Dosage: 1 G, TWICE A DAY
     Route: 042
  27. METRONIDAZOLE. [Suspect]
     Active Substance: METRONIDAZOLE
     Dosage: 500 MG, TWICE A DAY
     Route: 042
  28. LEVOTHYROXINE. [Concomitant]
     Active Substance: LEVOTHYROXINE
     Dosage: 0.05 MG, ONCE A DAY
     Route: 048
  29. CORTIFOAM [Concomitant]
     Active Substance: HYDROCORTISONE ACETATE
     Indication: PAIN

REACTIONS (10)
  - Constipation [Unknown]
  - Abscess [Unknown]
  - Fistula [Unknown]
  - Alopecia [Recovering/Resolving]
  - Arthralgia [Unknown]
  - Blood pressure decreased [Unknown]
  - Myalgia [Unknown]
  - Diarrhoea [Unknown]
  - Fibromyalgia [Unknown]
  - Anal fissure [Recovering/Resolving]

NARRATIVE: CASE EVENT DATE: 2017
